FAERS Safety Report 6947194-1 (Version None)
Quarter: 2010Q3

REPORT INFORMATION
  Report Type: 
  Country: None (occurrence: None)
  Receive Date: 20100827
  Receipt Date: 20090921
  Transmission Date: 20110219
  Serious: No
  Sender: FDA-Public Use
  Company Number: US-ABBOTT-09P-163-0595338-00

PATIENT
  Sex: Male
  Weight: 49.94 kg

DRUGS (2)
  1. NIASPAN [Suspect]
     Indication: BLOOD CHOLESTEROL INCREASED
     Route: 048
     Dates: start: 20090823, end: 20090826
  2. NIASPAN [Suspect]
     Route: 048
     Dates: start: 20090827

REACTIONS (1)
  - FLUSHING [None]
